FAERS Safety Report 22319094 (Version 2)
Quarter: 2023Q2

REPORT INFORMATION
  Report Type: Report from Study
  Country: US (occurrence: US)
  Receive Date: 20230515
  Receipt Date: 20230516
  Transmission Date: 20230721
  Serious: No
  Sender: FDA-Public Use
  Company Number: US-002147023-NVSC2023US106419

PATIENT
  Age: 62 Year
  Sex: Female
  Weight: 69.85 kg

DRUGS (2)
  1. TREPROSTINIL [Suspect]
     Active Substance: TREPROSTINIL
     Indication: Pulmonary arterial hypertension
     Dosage: 34.5 NG/KG/MIN, CONT
     Route: 042
     Dates: start: 20211130
  2. OPSUMIT [Concomitant]
     Active Substance: MACITENTAN
     Indication: Product used for unknown indication
     Dosage: UNK
     Route: 065

REACTIONS (5)
  - Musculoskeletal discomfort [Not Recovered/Not Resolved]
  - Dyspnoea [Unknown]
  - Device issue [Unknown]
  - Device infusion issue [Unknown]
  - Device alarm issue [Unknown]

NARRATIVE: CASE EVENT DATE: 20220202
